FAERS Safety Report 13497299 (Version 1)
Quarter: 2017Q2

REPORT INFORMATION
  Report Type: Spontaneous
  Country: IT (occurrence: IT)
  Receive Date: 20170428
  Receipt Date: 20170428
  Transmission Date: 20170830
  Serious: Yes (Other)
  Sender: FDA-Public Use
  Company Number: IT-ASTRAZENECA-2017SE42526

PATIENT
  Age: 78 Year
  Sex: Female

DRUGS (1)
  1. IRESSA [Suspect]
     Active Substance: GEFITINIB
     Route: 048
     Dates: start: 201404

REACTIONS (6)
  - Pain [Unknown]
  - EGFR gene mutation [Unknown]
  - Blood disorder [Unknown]
  - Metastases to bone [Unknown]
  - Rash [Unknown]
  - Malignant neoplasm progression [Unknown]
